FAERS Safety Report 17462385 (Version 9)
Quarter: 2020Q3

REPORT INFORMATION
  Report Type: Spontaneous
  Country: JP (occurrence: JP)
  Receive Date: 20200226
  Receipt Date: 20200831
  Transmission Date: 20201102
  Serious: Yes (Hospitalization)
  Sender: FDA-Public Use
  Company Number: JP-ABBVIE-19K-087-2935316-00

PATIENT
  Age: 73 Year
  Sex: Female

DRUGS (4)
  1. DUODOPA [Suspect]
     Active Substance: CARBIDOPA\LEVODOPA
     Indication: PARKINSON^S DISEASE
     Route: 050
     Dates: start: 201907, end: 2019
  2. CARBIDOPA HYDRATE AND LEVODOPA [Concomitant]
     Indication: PRODUCT USED FOR UNKNOWN INDICATION
  3. SUVOREXANT. [Concomitant]
     Active Substance: SUVOREXANT
     Indication: PRODUCT USED FOR UNKNOWN INDICATION
  4. DUODOPA [Suspect]
     Active Substance: CARBIDOPA\LEVODOPA
     Indication: PRODUCT USED FOR UNKNOWN INDICATION
     Route: 050
     Dates: start: 201908

REACTIONS (34)
  - Hypoacusis [Unknown]
  - Productive cough [Unknown]
  - Weight decreased [Unknown]
  - Stoma site inflammation [Unknown]
  - Bedridden [Unknown]
  - Posture abnormal [Unknown]
  - Mobility decreased [Unknown]
  - Dermatitis contact [Unknown]
  - Therapeutic product effect decreased [Unknown]
  - Stoma site abscess [Unknown]
  - Fatigue [Unknown]
  - Medical device pain [Unknown]
  - Stoma site hypergranulation [Not Recovered/Not Resolved]
  - Abdominal pain [Unknown]
  - Drug ineffective [Unknown]
  - Back pain [Unknown]
  - Dyspnoea [Unknown]
  - Stoma site oedema [Unknown]
  - Dyskinesia [Unknown]
  - Torticollis [Unknown]
  - Lordosis [Unknown]
  - Asthenia [Unknown]
  - Malaise [Unknown]
  - Stoma site erythema [Unknown]
  - Stoma site discharge [Unknown]
  - Device occlusion [Unknown]
  - Gait disturbance [Unknown]
  - Off label use [Unknown]
  - Dizziness [Unknown]
  - Stoma site pain [Unknown]
  - Arthralgia [Unknown]
  - Neck pain [Unknown]
  - Insomnia [Unknown]
  - Confusional state [Unknown]

NARRATIVE: CASE EVENT DATE: 2019
